FAERS Safety Report 4779782-5 (Version None)
Quarter: 2005Q3

REPORT INFORMATION
  Report Type: 
  Country: None (occurrence: None)
  Receive Date: 20050914
  Receipt Date: 20050401
  Transmission Date: 20060218
  Serious: Yes (Other)
  Sender: FDA-Public Use
  Company Number: 163-20785-05040213

PATIENT
  Sex: Male

DRUGS (4)
  1. THALOMID [Suspect]
     Indication: PROSTATIC INTRAEPITHELIAL NEOPLASIA
     Dosage: 200 MG OR PLACEBO, DAILY, ORAL
     Route: 048
     Dates: start: 20010820
  2. THALOMID [Suspect]
     Indication: PROSTATIC INTRAEPITHELIAL NEOPLASIA
     Dosage: 200 MG OR PLACEBO, DAILY, ORAL
     Route: 048
     Dates: start: 20021220
  3. LEUPROLIDE ACETATE [Suspect]
     Indication: PROSTATIC INTRAEPITHELIAL NEOPLASIA
     Dosage: LEUPROLIDE (L) 7.5MG IM OR GOSERELIN (G) 3.6MG SC EVERY 28 DAYS FOR 6 CYCLES OR LEUPROLIDE (L) 22.5M
     Dates: start: 20010820
  4. LEUPROLIDE ACETATE [Suspect]
     Indication: PROSTATIC INTRAEPITHELIAL NEOPLASIA
     Dosage: LEUPROLIDE (L) 7.5MG IM OR GOSERELIN (G) 3.6MG SC EVERY 28 DAYS FOR 6 CYCLES OR LEUPROLIDE (L) 22.5M
     Dates: start: 20021220

REACTIONS (3)
  - ARTHRALGIA [None]
  - HYPERTENSION [None]
  - SICK SINUS SYNDROME [None]
